FAERS Safety Report 23097216 (Version 1)
Quarter: 2023Q4

REPORT INFORMATION
  Report Type: Report from Study
  Country: US (occurrence: US)
  Receive Date: 20231023
  Receipt Date: 20231023
  Transmission Date: 20240110
  Serious: Yes (Hospitalization)
  Sender: FDA-Public Use
  Company Number: US-Accord-386650

PATIENT
  Sex: Female
  Weight: 98.2 kg

DRUGS (1)
  1. CLOZAPINE [Suspect]
     Active Substance: CLOZAPINE
     Indication: Product used for unknown indication
     Dosage: 50 MG, ORAL AT 7 AM AND 3 PM DAILY, AND 300 MG, ORAL, EVERY NIGHT
     Route: 048

REACTIONS (2)
  - Obsessive thoughts [Unknown]
  - Suicidal ideation [Unknown]
